FAERS Safety Report 13903781 (Version 1)
Quarter: 2017Q3

REPORT INFORMATION
  Report Type: Spontaneous
  Country: US (occurrence: US)
  Receive Date: 20170824
  Receipt Date: 20170824
  Transmission Date: 20171127
  Serious: No
  Sender: FDA-Public Use
  Company Number: US-ACTELION-A-US2017-158512

PATIENT
  Age: 52 Year
  Sex: Female

DRUGS (5)
  1. TRILIPIX [Concomitant]
     Active Substance: FENOFIBRIC ACID
  2. SEROQUEL [Concomitant]
     Active Substance: QUETIAPINE FUMARATE
  3. VALCHLOR [Suspect]
     Active Substance: MECHLORETHAMINE
     Indication: MYCOSIS FUNGOIDES
     Dosage: UNK
     Route: 061
     Dates: start: 20170222
  4. CELEXA [Concomitant]
     Active Substance: CITALOPRAM HYDROBROMIDE
  5. BETAMETHASONE ACETATE W/SODIUM PHOSPHATE DIBA [Concomitant]

REACTIONS (4)
  - Skin discolouration [Unknown]
  - Erythema [Unknown]
  - Pruritus [Unknown]
  - Therapy non-responder [Unknown]
